FAERS Safety Report 6681511-5 (Version None)
Quarter: 2010Q2

REPORT INFORMATION
  Report Type: 
  Country: None (occurrence: None)
  Receive Date: 20100414
  Receipt Date: 20100401
  Transmission Date: 20101027
  Serious: Yes (Other)
  Sender: FDA-Public Use
  Company Number: BR-MEDIMMUNE-MEDI-0011031

PATIENT
  Sex: Male
  Weight: 8.075 kg

DRUGS (5)
  1. SYNAGIS [Suspect]
     Route: 030
     Dates: start: 20090911
  2. CAPTOPRIL [Concomitant]
     Indication: BLOOD PRESSURE
     Dosage: 0.5 TAB IN 5 ML
     Route: 048
     Dates: start: 20100320
  3. FUROSEMIDE [Concomitant]
     Indication: FLUID RETENTION
     Dosage: 1 TAB IN 5 ML OF WATER
     Route: 048
     Dates: start: 20090401
  4. SPIRONOLACTONE [Concomitant]
     Route: 048
     Dates: start: 20090401
  5. ACETYLCYSTEINE [Concomitant]
     Indication: ANTICOAGULANT THERAPY
     Route: 048
     Dates: start: 20100320

REACTIONS (1)
  - CARDIOMYOPATHY [None]
